FAERS Safety Report 4727039-0 (Version None)
Quarter: 2005Q3

REPORT INFORMATION
  Report Type: 
  Country: None (occurrence: None)
  Receive Date: 20050728
  Receipt Date: 20050503
  Transmission Date: 20060218
  Serious: Yes (Other)
  Sender: FDA-Public Use
  Company Number: US-NOVOPROD-243937

PATIENT
  Age: 15 Year
  Sex: Male
  Weight: 75 kg

DRUGS (1)
  1. NOVOSEVEN [Suspect]
     Indication: HAEMOPHILIA B WITH ANTI FACTOR IX
     Dosage: 90 UG/KG, PRN
     Route: 042
     Dates: start: 20031001

REACTIONS (2)
  - HEPATITIS C [None]
  - TATTOO [None]
